FAERS Safety Report 13867446 (Version 1)
Quarter: 2017Q3

REPORT INFORMATION
  Report Type: Spontaneous
  Country: US (occurrence: US)
  Receive Date: 20170814
  Receipt Date: 20170814
  Transmission Date: 20171127
  Serious: No
  Sender: FDA-Public Use
  Company Number: US-GALEN SPECIALTY PHARMA US LLC-AE-2016-0477

PATIENT
  Sex: Female

DRUGS (1)
  1. SYNERA [Suspect]
     Active Substance: LIDOCAINE\TETRACAINE
     Route: 061

REACTIONS (2)
  - Drug ineffective [Recovered/Resolved]
  - Product colour issue [None]

NARRATIVE: CASE EVENT DATE: 20160927
